FAERS Safety Report 14618841 (Version 1)
Quarter: 2018Q1

REPORT INFORMATION
  Report Type: Spontaneous
  Country: NL (occurrence: NL)
  Receive Date: 20180309
  Receipt Date: 20180309
  Transmission Date: 20180509
  Serious: Yes (Other)
  Sender: FDA-Public Use
  Company Number: NL-BAUSCH-BL-2018-005904

PATIENT
  Age: 63 Year
  Sex: Male

DRUGS (3)
  1. FOLIC ACID. [Suspect]
     Active Substance: FOLIC ACID
     Indication: COLORECTAL CANCER METASTATIC
     Dosage: EVERY CYCLE
     Route: 065
  2. OXALIPLATIN. [Suspect]
     Active Substance: OXALIPLATIN
     Indication: COLORECTAL CANCER METASTATIC
     Dosage: EVERY CYCLE
     Route: 065
  3. FLUOROURACIL. [Suspect]
     Active Substance: FLUOROURACIL
     Indication: COLORECTAL CANCER METASTATIC
     Dosage: EVERY CYCLE
     Route: 065

REACTIONS (1)
  - Renal impairment [Unknown]
